FAERS Safety Report 5810521-2 (Version None)
Quarter: 2008Q3

REPORT INFORMATION
  Report Type: 
  Country: None (occurrence: None)
  Receive Date: 20080715
  Receipt Date: 20080707
  Transmission Date: 20090109
  Serious: Yes (Other)
  Sender: FDA-Public Use
  Company Number: US-ELI_LILLY_AND_COMPANY-US200805005760

PATIENT
  Sex: Male
  Weight: 105.22 kg

DRUGS (7)
  1. BYETTA [Suspect]
     Indication: TYPE 2 DIABETES MELLITUS
     Dosage: 5 UG, 2/D
     Route: 058
     Dates: start: 20080301, end: 20080401
  2. BYETTA [Suspect]
     Dosage: 10 UG, 2/D
     Route: 058
     Dates: start: 20080401
  3. GLYBURIDE [Concomitant]
     Indication: TYPE 2 DIABETES MELLITUS
     Dosage: UNK, 2/D
     Route: 048
     Dates: end: 20080401
  4. GLYBURIDE [Concomitant]
     Dosage: UNK, 2/D
     Route: 048
     Dates: start: 20080401
  5. GLYBURIDE [Concomitant]
     Dosage: 10 MG, 2/D
  6. METFORMIN [Concomitant]
     Indication: TYPE 2 DIABETES MELLITUS
     Dosage: 1000 MG, DAILY (1/D)
     Route: 048
  7. METFORMIN [Concomitant]
     Dosage: 500 MG, EACH EVENING

REACTIONS (6)
  - DECREASED APPETITE [None]
  - FALL [None]
  - HYPOGLYCAEMIC UNCONSCIOUSNESS [None]
  - NAUSEA [None]
  - STOMACH DISCOMFORT [None]
  - WEIGHT DECREASED [None]
